FAERS Safety Report 8564172-X (Version None)
Quarter: 2012Q3

REPORT INFORMATION
  Report Type: 
  Country: None (occurrence: None)
  Receive Date: 20120803
  Receipt Date: 20120723
  Transmission Date: 20120928
  Serious: Yes (Other)
  Sender: FDA-Public Use
  Company Number: DE-MPIJNJ-2012-05254

PATIENT

DRUGS (11)
  1. COTRIM FORTE EU RHO [Concomitant]
     Dosage: 980 MG, UNK
  2. RENAGEL [Concomitant]
     Dosage: 800 MG, UNK
  3. NOVALGIN                           /00169801/ [Concomitant]
     Indication: PAIN
  4. VELCADE [Suspect]
     Indication: MULTIPLE MYELOMA
     Dosage: UNK
     Route: 065
     Dates: start: 20120706, end: 20120717
  5. KATADOLON                          /00890102/ [Concomitant]
     Dosage: 100 MG, UNK
  6. ZOFRAN [Concomitant]
     Dosage: 8 MG, UNK
  7. ROCALTROL [Concomitant]
  8. DEXAMETHASONE [Concomitant]
     Dosage: 20 MG, UNK
  9. ACYCLOVIR [Concomitant]
     Dosage: 200 MG, UNK
  10. PANTOZOL                           /01263202/ [Concomitant]
     Dosage: 40 MG, UNK
  11. LEVOTHYROXINE SODIUM [Concomitant]

REACTIONS (1)
  - MUSCULAR WEAKNESS [None]
